FAERS Safety Report 24755137 (Version 1)
Quarter: 2024Q4

REPORT INFORMATION
  Report Type: Spontaneous
  Country: PL (occurrence: PL)
  Receive Date: 20241219
  Receipt Date: 20241219
  Transmission Date: 20250115
  Serious: Yes (Other)
  Sender: MYLAN
  Company Number: PL-PFM-2018-04886

PATIENT
  Age: 17 Year
  Sex: Male

DRUGS (5)
  1. ISOTRETINOIN [Suspect]
     Active Substance: ISOTRETINOIN
     Indication: Acne
     Dosage: 20 MILLIGRAM, QD (20 MG, AT NIGHT)
     Route: 065
     Dates: start: 20170907
  2. ISOTRETINOIN [Suspect]
     Active Substance: ISOTRETINOIN
     Indication: Acne conglobata
  3. ISOTRETINOIN [Suspect]
     Active Substance: ISOTRETINOIN
     Indication: Acne conglobata
     Dosage: 10 MILLIGRAM, QD (10 MG, IN THE MORNING)
     Route: 065
     Dates: start: 20171002, end: 20180402
  4. ISOTRETINOIN [Suspect]
     Active Substance: ISOTRETINOIN
     Indication: Acne
     Dosage: 20 MILLIGRAM, QD (20 MG, AT NIGHT)
     Route: 065
     Dates: start: 20170907, end: 20180402
  5. DAVERCIN [Concomitant]
     Indication: Product used for unknown indication
     Dosage: UNK
     Route: 065

REACTIONS (7)
  - Hallucination, auditory [Unknown]
  - Learning disorder [Unknown]
  - Speech disorder [Unknown]
  - Sleep disorder [Unknown]
  - Social problem [Unknown]
  - Depression [Unknown]
  - Dry skin [Unknown]

NARRATIVE: CASE EVENT DATE: 20180401
